FAERS Safety Report 10347181 (Version 2)
Quarter: 2014Q3

REPORT INFORMATION
  Report Type: Spontaneous
  Country: JP (occurrence: JP)
  Receive Date: 20140729
  Receipt Date: 20140812
  Transmission Date: 20150326
  Serious: Yes (Other)
  Sender: FDA-Public Use
  Company Number: JP-ELI_LILLY_AND_COMPANY-JP201407007510

PATIENT
  Age: 69 Year
  Sex: Male

DRUGS (1)
  1. GEMZAR [Suspect]
     Active Substance: GEMCITABINE HYDROCHLORIDE
     Indication: PANCREATIC CARCINOMA STAGE IV
     Dosage: UNK UNK, OTHER
     Route: 042

REACTIONS (7)
  - Ascites [Unknown]
  - Injection site hypersensitivity [Unknown]
  - Anaemia [Recovering/Resolving]
  - Neutrophil count decreased [Recovering/Resolving]
  - Malignant neoplasm progression [Unknown]
  - Platelet count decreased [Recovering/Resolving]
  - White blood cell count decreased [Recovering/Resolving]
